FAERS Safety Report 9215198 (Version 1)
Quarter: 2013Q2

REPORT INFORMATION
  Report Type: Report from Study
  Country: NZ (occurrence: NZ)
  Receive Date: 20130405
  Receipt Date: 20130405
  Transmission Date: 20140414
  Serious: Yes (Hospitalization)
  Sender: FDA-Public Use
  Company Number: NZ-AMGEN-US221851

PATIENT
  Age: 67 Year
  Sex: Male

DRUGS (11)
  1. DENOSUMAB [Suspect]
     Indication: PROSTATE CANCER
     Dosage: 2 ML, QMO
     Route: 058
     Dates: start: 20061012
  2. IBUPROFEN [Suspect]
     Dosage: UNK UNK, UNK
     Route: 065
  3. PARACETAMOL [Concomitant]
     Dosage: 1 G, QD
     Route: 048
     Dates: start: 20061013
  4. MORPHINE [Concomitant]
     Dosage: 10 MG, BID
     Route: 048
     Dates: start: 20070416
  5. DOCUSATE [Concomitant]
     Dosage: UNK UNK, QD
     Route: 048
     Dates: start: 20070403
  6. OXYBUTYNIN [Concomitant]
     Dosage: 5 MG, TID
     Route: 048
     Dates: start: 20061129
  7. DOXAZOSIN [Concomitant]
     Dosage: 8 MG, QD
     Route: 048
     Dates: start: 20060911
  8. GLUCOSAMINE [Concomitant]
     Dosage: 750 MG, QD
     Route: 048
     Dates: start: 2005
  9. BECLOMETASONE DIPROPIONATE [Concomitant]
     Dosage: UNK UNK, PRN
     Route: 055
     Dates: start: 2004
  10. CALCIUM [Concomitant]
     Dosage: UNK UNK, UNK
     Dates: start: 20061013
  11. ERGOCALCIFEROL [Concomitant]
     Dosage: 200 IU, QD
     Route: 048
     Dates: start: 20061013

REACTIONS (1)
  - Anaemia [Recovered/Resolved]
